FAERS Safety Report 5340661-6 (Version None)
Quarter: 2007Q2

REPORT INFORMATION
  Report Type: 
  Country: None (occurrence: None)
  Receive Date: 20070405
  Receipt Date: 20070214
  Transmission Date: 20071010
  Serious: Yes (Other)
  Sender: FDA-Public Use
  Company Number: US200701001029

PATIENT
  Age: 68 Year
  Sex: Male
  Weight: 95.7 kg

DRUGS (11)
  1. CYMBALTA [Suspect]
  2. ALTACE [Concomitant]
  3. GLIPIZIDE [Concomitant]
  4. CARDIZEM [Concomitant]
  5. SINGULAIR [Concomitant]
  6. ASPIRIN [Concomitant]
  7. PREVACID [Concomitant]
  8. VALIUM /NET/ (DIAZEPAM) [Concomitant]
  9. AMBIEN [Concomitant]
  10. DHE (DEHYDROEMETINE) [Concomitant]
  11. FISH OIL (FISH OIL) [Concomitant]

REACTIONS (5)
  - DRUG WITHDRAWAL SYNDROME [None]
  - GASTROINTESTINAL DISORDER [None]
  - MEMORY IMPAIRMENT [None]
  - SUICIDAL BEHAVIOUR [None]
  - TREMOR [None]
